FAERS Safety Report 6895995-0 (Version None)
Quarter: 2010Q3

REPORT INFORMATION
  Report Type: 
  Country: None (occurrence: None)
  Receive Date: 20100802
  Receipt Date: 20100719
  Transmission Date: 20110219
  Serious: Yes (Hospitalization, Other)
  Sender: FDA-Public Use
  Company Number: GB-PURDUE-USA-2010-0045335

PATIENT
  Age: 24 Year
  Sex: Female

DRUGS (4)
  1. TRAMADOL HCL [Suspect]
     Indication: URINARY TRACT INFECTION
  2. DICLOFENAC SODIUM [Suspect]
     Indication: URINARY TRACT INFECTION
  3. PARACETAMOL [Suspect]
     Indication: URINARY TRACT INFECTION
  4. TRIMETHOPRIM [Suspect]
     Indication: URINARY TRACT INFECTION

REACTIONS (3)
  - BLOOD SODIUM DECREASED [None]
  - HYPOTENSION [None]
  - PORPHYRIA ACUTE [None]
